FAERS Safety Report 4878778-2 (Version None)
Quarter: 2006Q1

REPORT INFORMATION
  Report Type: 
  Country: None (occurrence: None)
  Receive Date: 20060112
  Receipt Date: 20060105
  Transmission Date: 20060701
  Serious: Yes (Other)
  Sender: FDA-Public Use
  Company Number: PHBS2006JP00653

PATIENT

DRUGS (1)
  1. DIOVAN [Suspect]
     Dosage: 80 MG/DAY
     Route: 048

REACTIONS (5)
  - BLOOD GLUCOSE DECREASED [None]
  - COLD SWEAT [None]
  - HYPOGLYCAEMIA [None]
  - SPEECH DISORDER [None]
  - YAWNING [None]
